FAERS Safety Report 13616086 (Version 1)
Quarter: 2017Q2

REPORT INFORMATION
  Report Type: Spontaneous
  Country: US (occurrence: US)
  Receive Date: 20170606
  Receipt Date: 20170606
  Transmission Date: 20170830
  Serious: No
  Sender: FDA-Public Use
  Company Number: US-GLENMARK PHARMACEUTICALS-2016GMK025629

PATIENT

DRUGS (1)
  1. HEATHER [Suspect]
     Active Substance: NORETHINDRONE
     Indication: PRODUCT USED FOR UNKNOWN INDICATION
     Dosage: 2 DF, FOR 10 DAYS
     Route: 048

REACTIONS (3)
  - Adverse event [Unknown]
  - Vaginal haemorrhage [Unknown]
  - Drug ineffective [Unknown]
